FAERS Safety Report 13213944 (Version 1)
Quarter: 2017Q1

REPORT INFORMATION
  Report Type: Spontaneous
  Country: US (occurrence: US)
  Receive Date: 20170209
  Receipt Date: 20170209
  Transmission Date: 20170428
  Serious: No
  Sender: FDA-Public Use
  Company Number: US-ALLERGAN-1667223US

PATIENT
  Sex: Male

DRUGS (4)
  1. BOTOX [Suspect]
     Active Substance: ONABOTULINUMTOXINA
     Indication: MIGRAINE
     Dosage: UNK UNK, SINGLE
     Route: 030
     Dates: start: 20160628, end: 20160628
  2. VALIUM [Concomitant]
     Active Substance: DIAZEPAM
     Indication: MIGRAINE
     Dosage: UNK UNK, PRN
     Route: 048
  3. OXYCODONE [Concomitant]
     Active Substance: OXYCODONE
     Indication: MIGRAINE
     Dosage: UNK UNK, PRN
     Route: 048
  4. BUTALBITAL [Concomitant]
     Active Substance: BUTALBITAL
     Indication: MIGRAINE
     Dosage: UNK UNK, PRN
     Route: 048

REACTIONS (4)
  - Toxicity to various agents [Recovered/Resolved]
  - Asthenia [Recovered/Resolved]
  - Dysphagia [Recovered/Resolved]
  - Fatigue [Recovered/Resolved]
